FAERS Safety Report 13709514 (Version 8)
Quarter: 2018Q3

REPORT INFORMATION
  Report Type: Report from Study
  Country: CN (occurrence: CN)
  Receive Date: 20170703
  Receipt Date: 20180726
  Transmission Date: 20181010
  Serious: Yes (Hospitalization)
  Sender: FDA-Public Use
  Company Number: CN-ROCHE-1954744

PATIENT
  Age: 44 Year
  Sex: Female
  Weight: 56 kg

DRUGS (11)
  1. LEVOTHYROXINE. [Concomitant]
     Active Substance: LEVOTHYROXINE
     Indication: THYROIDITIS
     Route: 048
     Dates: start: 20150620
  2. PERTUZUMAB. [Suspect]
     Active Substance: PERTUZUMAB
     Indication: HER-2 POSITIVE GASTRIC CANCER
     Dosage: MOST RECENT DOSE PRIOR TO EVENT ONSET ON 04/MAY/2017
     Route: 042
     Dates: start: 20141024
  3. DEXAMETHASONE. [Concomitant]
     Active Substance: DEXAMETHASONE
     Dosage: PREVENTING FROM ALLERGY
     Route: 042
     Dates: start: 20170301
  4. GLUTATHIONE SODIUM [Concomitant]
     Active Substance: GLUTATHIONE
     Dosage: HEPATOPROTECTIVE
     Route: 042
     Dates: start: 20170301
  5. TRASTUZUMAB. [Suspect]
     Active Substance: TRASTUZUMAB
     Indication: HER-2 POSITIVE GASTRIC CANCER
     Dosage: LOADING DOSE?MOST RECENT DOSE PRIOR TO EVENT ONSET ON 04/MAY/2017
     Route: 042
     Dates: start: 20141024
  6. BICYCLOL [Concomitant]
     Active Substance: BICYCLOL
     Indication: HEPATIC FUNCTION ABNORMAL
     Route: 048
     Dates: start: 20150511
  7. DIPHENHYDRAMINE. [Concomitant]
     Active Substance: DIPHENHYDRAMINE
     Dosage: PREVENTING FROM ALLERGY
     Route: 030
     Dates: start: 20170301
  8. PANTOPRAZOLE SODIUM. [Concomitant]
     Active Substance: PANTOPRAZOLE SODIUM
     Dosage: ACID FAST
     Route: 042
     Dates: start: 20170301
  9. TRASTUZUMAB. [Suspect]
     Active Substance: TRASTUZUMAB
     Dosage: MAINTAINENCE DOSE?MOST RECENT DOSE PRIOR TO EVENT ONSET ON 04/MAY/2017: 336 MG
     Route: 042
  10. CISPLATIN. [Suspect]
     Active Substance: CISPLATIN
     Indication: HER-2 POSITIVE GASTRIC CANCER
     Dosage: MOST RECENT DOSE PRIOR TO EVENT ONSET ON 02/MAR/2015: 84 MG
     Route: 042
     Dates: start: 20141024
  11. CAPECITABINE. [Suspect]
     Active Substance: CAPECITABINE
     Indication: HER-2 POSITIVE GASTRIC CANCER
     Dosage: MOST RECENT DOSE PRIOR TO EVENT ONSET ON 11/APR/2015: 800 MG?EVENING OF DAY 1 TO MORNING OF DAY 15 (
     Route: 048
     Dates: start: 20141024

REACTIONS (1)
  - Myelodysplastic syndrome [Not Recovered/Not Resolved]

NARRATIVE: CASE EVENT DATE: 20170619
